FAERS Safety Report 10652318 (Version 5)
Quarter: 2025Q3

REPORT INFORMATION
  Report Type: Spontaneous
  Country: EU (occurrence: EU)
  Receive Date: 20141215
  Receipt Date: 20250821
  Transmission Date: 20251021
  Serious: Yes (Hospitalization, Other)
  Sender: BOEHRINGER INGELHEIM
  Company Number: EU-BOEHRINGER INGELHEIM GMBH, GERMANY-2014-BI-59808NL

PATIENT
  Age: 68 Year
  Sex: Female

DRUGS (3)
  1. PRADAXA [Suspect]
     Active Substance: DABIGATRAN ETEXILATE MESYLATE
     Indication: Atrial fibrillation
     Dates: start: 20141027, end: 20141114
  2. TAMBOCOR CR [Concomitant]
     Indication: Product used for unknown indication
     Dosage: 200 MG
     Dates: start: 20141027, end: 20141203
  3. METOPROLOL [Concomitant]
     Active Substance: METOPROLOL
     Indication: Product used for unknown indication
     Dosage: 50 MG
     Dates: start: 20141027

REACTIONS (4)
  - Oesophagitis [Recovered/Resolved]
  - Cognitive disorder [Unknown]
  - Basilar artery thrombosis [Unknown]
  - Foreign body in throat [Recovered/Resolved]

NARRATIVE: CASE EVENT DATE: 20141114
